FAERS Safety Report 22061471 (Version 1)
Quarter: 2023Q1

REPORT INFORMATION
  Report Type: Report from Study
  Country: CA (occurrence: CA)
  Receive Date: 20230304
  Receipt Date: 20230304
  Transmission Date: 20230418
  Serious: Yes (Death, Other)
  Sender: FDA-Public Use
  Company Number: CA-ABBVIE-22K-028-4278871-00

PATIENT
  Sex: Female

DRUGS (2)
  1. HUMIRA [Suspect]
     Active Substance: ADALIMUMAB
     Indication: Psoriasis
     Route: 058
     Dates: start: 20121104
  2. COVID-19 VACCINE [Concomitant]
     Indication: COVID-19 immunisation
     Dosage: TIME INTERVAL: 1 TOTAL: ONCE
     Route: 030
     Dates: start: 2021, end: 2021

REACTIONS (7)
  - Lung neoplasm malignant [Unknown]
  - Psoriasis [Not Recovered/Not Resolved]
  - Anxiety [Unknown]
  - Impaired self-care [Unknown]
  - Immune system disorder [Unknown]
  - Dermatitis bullous [Unknown]
  - Death [Fatal]

NARRATIVE: CASE EVENT DATE: 20210101
